FAERS Safety Report 16710171 (Version 1)
Quarter: 2019Q3

REPORT INFORMATION
  Report Type: Spontaneous
  Country: CA (occurrence: CA)
  Receive Date: 20190816
  Receipt Date: 20190816
  Transmission Date: 20191004
  Serious: Yes (Death)
  Sender: FDA-Public Use
  Company Number: CA-PFIZER INC-2019348547

PATIENT
  Sex: Male

DRUGS (2)
  1. MORPHINE SULFATE. [Suspect]
     Active Substance: MORPHINE SULFATE
     Dosage: UNK (INJECTION)
     Dates: start: 1936
  2. COCAINE [Suspect]
     Active Substance: COCAINE
     Dosage: UNK (INJECTION)
     Dates: start: 1936

REACTIONS (1)
  - Death [Fatal]

NARRATIVE: CASE EVENT DATE: 1936
